FAERS Safety Report 4975159-8 (Version None)
Quarter: 2006Q2

REPORT INFORMATION
  Report Type: 
  Country: None (occurrence: None)
  Receive Date: 20060417
  Receipt Date: 20060417
  Transmission Date: 20061013
  Serious: Yes (Hospitalization)
  Sender: FDA-Public Use
  Company Number: None

PATIENT
  Sex: Female
  Weight: 91.6266 kg

DRUGS (1)
  1. AMANTADINE HCL [Suspect]
     Indication: OBESITY
     Dosage: 200MG  BID  PO
     Route: 048
     Dates: start: 20051229, end: 20060121

REACTIONS (4)
  - CYANOSIS [None]
  - FALL [None]
  - GRAND MAL CONVULSION [None]
  - MYDRIASIS [None]
